FAERS Safety Report 11389731 (Version 1)
Quarter: 2015Q3

REPORT INFORMATION
  Report Type: Spontaneous
  Country: US (occurrence: US)
  Receive Date: 20150817
  Receipt Date: 20150817
  Transmission Date: 20151125
  Serious: No
  Sender: FDA-Public Use
  Company Number: ALCN2015US004567

PATIENT
  Age: 63 Year
  Sex: Female

DRUGS (1)
  1. SYSTANE BALANCE [Suspect]
     Active Substance: PROPYLENE GLYCOL
     Indication: DRY EYE
     Dosage: 2 GTT, QID
     Route: 047
     Dates: end: 20150719

REACTIONS (2)
  - Vision blurred [Recovered/Resolved]
  - Eye pain [Recovered/Resolved]
